FAERS Safety Report 26171199 (Version 1)
Quarter: 2025Q4

REPORT INFORMATION
  Report Type: Spontaneous
  Country: US (occurrence: None)
  Receive Date: 20251217
  Receipt Date: 20251217
  Transmission Date: 20260117
  Serious: Yes (Other)
  Sender: FDA-CTU
  Company Number: None

PATIENT
  Age: 54 Year
  Sex: Female

DRUGS (1)
  1. DUPIXENT [Suspect]
     Active Substance: DUPILUMAB
     Indication: Asthma
     Dosage: OTHER FREQUENCY : EVERY 2 WEEKS;
     Route: 058
     Dates: start: 20250402, end: 20251104

REACTIONS (5)
  - Joint stiffness [None]
  - Arthralgia [None]
  - Gait disturbance [None]
  - Visual impairment [None]
  - Dry eye [None]

NARRATIVE: CASE EVENT DATE: 20250801
